FAERS Safety Report 6376707-6 (Version None)
Quarter: 2009Q3

REPORT INFORMATION
  Report Type: 
  Country: None (occurrence: None)
  Receive Date: 20090925
  Receipt Date: 20090914
  Transmission Date: 20100115
  Serious: Yes (Other)
  Sender: FDA-Public Use
  Company Number: US-SOLVAY-00209005327

PATIENT
  Age: 600 Month
  Sex: Female

DRUGS (3)
  1. TYLENOL (CAPLET) [Concomitant]
     Indication: DYSMENORRHOEA
     Dosage: DAILY DOSE:  UNKNOWN, FREQUENCY: AS NEEDED.
     Route: 048
  2. PROMETRIUM [Suspect]
     Indication: MENSTRUATION IRREGULAR
     Dosage: DAILY DOSE: 200 MILLIGRAM(S), AS USED: 200 MILLIGRAMS, FREQUENCY: EVERY OTHER MONTH/EVERY 3RD MONTH
     Route: 048
     Dates: start: 20080625, end: 20081201
  3. MIDOL [Concomitant]
     Indication: DYSMENORRHOEA
     Dosage: DAILY DOSE:  UNKNOWN, FREQUENCY: AS NEEDED.
     Route: 048

REACTIONS (1)
  - VITREOUS DETACHMENT [None]
